FAERS Safety Report 7133030-X (Version None)
Quarter: 2010Q4

REPORT INFORMATION
  Report Type: 
  Country: None (occurrence: None)
  Receive Date: 20101202
  Receipt Date: 20101125
  Transmission Date: 20110411
  Serious: Yes (Other)
  Sender: FDA-Public Use
  Company Number: A0890722A

PATIENT
  Sex: Female

DRUGS (2)
  1. TYKERB [Suspect]
     Dosage: 1250MG PER DAY
     Route: 048
     Dates: start: 20100109, end: 20101123
  2. XELODA [Concomitant]
     Route: 065

REACTIONS (4)
  - DRUG TOXICITY [None]
  - IMPAIRED HEALING [None]
  - SKIN ULCER [None]
  - WOUND SECRETION [None]
